FAERS Safety Report 8242548 (Version 3)
Quarter: 2012Q4

REPORT INFORMATION
  Report Type: 
  Country: FR (occurrence: FR)
  Receive Date: 20111114
  Receipt Date: 20121101
  Transmission Date: 20130627
  Serious: Yes (Hospitalization, Other)
  Sender: FDA-Public Use
  Company Number: FR-UCBSA-045063

PATIENT
  Age: 67 Year
  Sex: Female
  Weight: 74 kg

DRUGS (4)
  1. CIMZIA [Suspect]
     Indication: RHEUMATOID ARTHRITIS
     Route: 058
     Dates: start: 2011, end: 201110
  2. CIMZIA [Suspect]
     Indication: RHEUMATOID ARTHRITIS
     Route: 058
     Dates: start: 201012, end: 2011
  3. METOJECT [Concomitant]
     Indication: RHEUMATOID ARTHRITIS
     Dates: start: 200910, end: 201110
  4. PREDNISONE [Concomitant]
     Indication: RHEUMATOID ARTHRITIS
     Dosage: DAILY DOSE: 8 MG
     Dates: start: 200909

REACTIONS (2)
  - Pulmonary tuberculosis [Recovered/Resolved]
  - Lymph node tuberculosis [Recovered/Resolved]
